FAERS Safety Report 5568493-4 (Version None)
Quarter: 2007Q4

REPORT INFORMATION
  Report Type: 
  Country: None (occurrence: None)
  Receive Date: 20071220
  Receipt Date: 20030618
  Transmission Date: 20080405
  Serious: Yes (Death)
  Sender: FDA-Public Use
  Company Number: JP-ROCHE-340483

PATIENT
  Age: 8 Year
  Sex: Female

DRUGS (1)
  1. CELLCEPT [Suspect]
     Route: 048
     Dates: start: 20030301

REACTIONS (2)
  - HEPATITIS FULMINANT [None]
  - PLATELET COUNT DECREASED [None]
